FAERS Safety Report 8968008 (Version 1)
Quarter: 2012Q4

REPORT INFORMATION
  Report Type: 
  Country: US (occurrence: US)
  Receive Date: 20121217
  Receipt Date: 20121217
  Transmission Date: 20130627
  Serious: Yes (Hospitalization)
  Sender: FDA-Public Use
  Company Number: US-ASTRAZENECA-2012SE92890

PATIENT
  Age: 36 Year
  Sex: Female
  Weight: 46.3 kg

DRUGS (7)
  1. SEROQUEL XR [Suspect]
     Indication: BIPOLAR DISORDER
     Route: 048
     Dates: start: 2008
  2. SEROQUEL XR [Suspect]
     Indication: BIPOLAR DISORDER
     Route: 048
  3. SEROQUEL XR [Suspect]
     Indication: BIPOLAR DISORDER
     Route: 048
  4. VALIUM [Concomitant]
     Dates: start: 2009
  5. TEMAZEPAM [Concomitant]
     Dates: start: 2009
  6. FLURAZEPAM [Concomitant]
     Dates: start: 2009
  7. IMITREX [Concomitant]
     Dates: start: 2009

REACTIONS (9)
  - Heart rate decreased [Unknown]
  - Nausea [Recovered/Resolved]
  - Sleep disorder [Recovered/Resolved]
  - Migraine [Not Recovered/Not Resolved]
  - Lip injury [Unknown]
  - Tooth injury [Unknown]
  - Fall [Unknown]
  - Vomiting [Recovered/Resolved]
  - Somnolence [Recovered/Resolved]
